FAERS Safety Report 19407597 (Version 2)
Quarter: 2021Q2

REPORT INFORMATION
  Report Type: Spontaneous
  Country: US (occurrence: US)
  Receive Date: 20210611
  Receipt Date: 20210627
  Transmission Date: 20210717
  Serious: Yes (Other)
  Sender: FDA-Public Use
  Company Number: NVSC2021US130999

PATIENT
  Sex: Male

DRUGS (4)
  1. MAGNESIUM OXIDE. [Concomitant]
     Active Substance: MAGNESIUM OXIDE
     Indication: PRODUCT USED FOR UNKNOWN INDICATION
     Dosage: 400 MG, BID
     Route: 065
  2. ERGOCALCIFEROL. [Concomitant]
     Active Substance: ERGOCALCIFEROL
     Indication: PRODUCT USED FOR UNKNOWN INDICATION
     Dosage: UNK, QD
     Route: 065
  3. RECLAST [Suspect]
     Active Substance: ZOLEDRONIC ACID
     Indication: PRODUCT USED FOR UNKNOWN INDICATION
     Dosage: 5 MG, Q12MO
     Route: 065
  4. ANDROGEL [Concomitant]
     Active Substance: TESTOSTERONE
     Indication: MUSCULOSKELETAL DISCOMFORT
     Dosage: UNK, QD
     Route: 065

REACTIONS (20)
  - Hypoparathyroidism [Unknown]
  - Pyrexia [Unknown]
  - Feeling abnormal [Unknown]
  - Hypocalcaemia [Unknown]
  - Eye haemorrhage [Unknown]
  - Blood calcium increased [Unknown]
  - Pallor [Unknown]
  - Ill-defined disorder [Unknown]
  - Chills [Unknown]
  - Ocular hyperaemia [Unknown]
  - Osteoporosis [Unknown]
  - Pollakiuria [Unknown]
  - Neck mass [Unknown]
  - Influenza [Unknown]
  - Sleep disorder [Unknown]
  - Headache [Unknown]
  - Foot fracture [Unknown]
  - Gait disturbance [Not Recovered/Not Resolved]
  - Bone pain [Unknown]
  - Back pain [Unknown]
